FAERS Safety Report 9969287 (Version 12)
Quarter: 2015Q4

REPORT INFORMATION
  Report Type: Spontaneous
  Country: GR (occurrence: GR)
  Receive Date: 20140306
  Receipt Date: 20151029
  Transmission Date: 20160305
  Serious: Yes (Death, Hospitalization, Other)
  Sender: FDA-Public Use
  Company Number: GR-BIOGENIDEC-2014BI002018

PATIENT
  Age: 32 Year
  Sex: Female
  Weight: 65 kg

DRUGS (3)
  1. PARIET [Concomitant]
     Active Substance: RABEPRAZOLE SODIUM
     Route: 048
  2. SEROXAT [Concomitant]
     Active Substance: PAROXETINE HYDROCHLORIDE
     Route: 048
  3. TYSABRI [Suspect]
     Active Substance: NATALIZUMAB
     Indication: MULTIPLE SCLEROSIS
     Route: 042
     Dates: start: 20080101, end: 20140225

REACTIONS (3)
  - Progressive multifocal leukoencephalopathy [Unknown]
  - Multiple sclerosis relapse [Not Recovered/Not Resolved]
  - Cardiac arrest [Fatal]
